FAERS Safety Report 14348248 (Version 12)
Quarter: 2018Q3

REPORT INFORMATION
  Report Type: Spontaneous
  Country: SE (occurrence: SE)
  Receive Date: 20180103
  Receipt Date: 20180806
  Transmission Date: 20181010
  Serious: Yes (Life-Threatening, Hospitalization, Other)
  Sender: FDA-Public Use
  Company Number: SE-ALLERGAN-1774393US

PATIENT
  Age: 51 Year
  Sex: Female

DRUGS (6)
  1. PROPANOLOL HYDROCHLORIDE [Suspect]
     Active Substance: PROPRANOLOL HYDROCHLORIDE
     Indication: SUICIDE ATTEMPT
     Dosage: 400 MG, UNK
     Route: 048
  2. NIFEDIPINE. [Suspect]
     Active Substance: NIFEDIPINE
     Indication: SUICIDE ATTEMPT
     Dosage: 100 MG, UNK
     Route: 048
  3. PARACETAMOL [Suspect]
     Active Substance: ACETAMINOPHEN
     Indication: SUICIDE ATTEMPT
     Dosage: UNK (LOW TO MODERATE DOSES)
     Route: 048
  4. ZOPLICONE [Suspect]
     Active Substance: ZOPICLONE
     Indication: SUICIDE ATTEMPT
     Dosage: LOW TO MODERATE DOSE
     Route: 048
  5. CITALOPRAM HYDROBROMIDE ? BP [Suspect]
     Active Substance: CITALOPRAM HYDROBROMIDE
     Indication: DEPRESSION
  6. CITALOPRAM HYDROBROMIDE ? BP [Suspect]
     Active Substance: CITALOPRAM HYDROBROMIDE
     Indication: SUICIDE ATTEMPT
     Dosage: LOW TO MODERATE DOSES
     Route: 048

REACTIONS (15)
  - Product use in unapproved indication [Unknown]
  - Blood pressure decreased [Recovered/Resolved]
  - Suicide attempt [Recovered/Resolved]
  - Anuria [Recovered/Resolved]
  - Toxicity to various agents [Recovered/Resolved]
  - Blood glucose decreased [Recovered/Resolved]
  - Myocardial depression [Recovered/Resolved]
  - Peripheral vascular disorder [Recovered/Resolved]
  - Hypertension [Unknown]
  - Seizure [Recovered/Resolved]
  - Drug abuse [Unknown]
  - Intentional overdose [Unknown]
  - Alcohol interaction [Recovered/Resolved]
  - Peripheral coldness [Recovered/Resolved]
  - Heart rate decreased [Recovered/Resolved]
